FAERS Safety Report 4726882-1 (Version None)
Quarter: 2005Q3

REPORT INFORMATION
  Report Type: 
  Country: None (occurrence: None)
  Receive Date: 20050725
  Receipt Date: 20050725
  Transmission Date: 20060218
  Serious: Yes (Hospitalization)
  Sender: FDA-Public Use
  Company Number: None

PATIENT
  Age: 53 Year
  Sex: Male
  Weight: 78.9259 kg

DRUGS (3)
  1. WARFARIN 2MG [Suspect]
     Indication: AORTIC VALVE REPLACEMENT
     Dosage: 4MG QHS ORAL
     Route: 048
     Dates: start: 20041101, end: 20050507
  2. GATIFLOXACIN [Concomitant]
  3. TYLENOL (CAPLET) [Concomitant]

REACTIONS (4)
  - HAEMATOCRIT DECREASED [None]
  - INTERNATIONAL NORMALISED RATIO INCREASED [None]
  - RECTAL HAEMORRHAGE [None]
  - URINARY TRACT INFECTION [None]
